FAERS Safety Report 7807225-3 (Version None)
Quarter: 2011Q4

REPORT INFORMATION
  Report Type: 
  Country: None (occurrence: None)
  Receive Date: 20111011
  Receipt Date: 20111003
  Transmission Date: 20120403
  Serious: Yes (Life-Threatening, Hospitalization)
  Sender: FDA-Public Use
  Company Number: FR-CELGENEUS-056-50794-11100511

PATIENT
  Age: 83 Year
  Sex: Male

DRUGS (4)
  1. VIDAZA [Suspect]
     Route: 058
     Dates: start: 20100430
  2. VIDAZA [Suspect]
     Route: 058
     Dates: start: 20090902
  3. VIDAZA [Suspect]
     Route: 058
     Dates: start: 20101126
  4. VIDAZA [Suspect]
     Route: 058
     Dates: start: 20090804

REACTIONS (2)
  - LUNG DISORDER [None]
  - HYPOXIA [None]
